FAERS Safety Report 23870421 (Version 7)
Quarter: 2025Q3

REPORT INFORMATION
  Report Type: Spontaneous
  Country: AU (occurrence: AU)
  Receive Date: 20240518
  Receipt Date: 20250711
  Transmission Date: 20251020
  Serious: Yes (Hospitalization)
  Sender: SANDOZ
  Company Number: AU-SANDOZ-SDZ2024AU024387

PATIENT
  Age: 76 Year
  Sex: Male
  Weight: 85 kg

DRUGS (3)
  1. METOPROLOL [Suspect]
     Active Substance: METOPROLOL
     Route: 065
  2. METOPROLOL [Suspect]
     Active Substance: METOPROLOL
     Indication: Tachycardia
     Dosage: 25 MG, BID
     Route: 048
     Dates: start: 20231106, end: 20241228
  3. METOPROLOL [Suspect]
     Active Substance: METOPROLOL
     Route: 065

REACTIONS (14)
  - Hypoaesthesia [Unknown]
  - Supraventricular tachycardia [Unknown]
  - Chest discomfort [Unknown]
  - Mobility decreased [Unknown]
  - Weight decreased [Unknown]
  - Feeding disorder [Unknown]
  - Loss of personal independence in daily activities [Unknown]
  - Sensory loss [Unknown]
  - Peripheral coldness [Not Recovered/Not Resolved]
  - Heart rate irregular [Unknown]
  - Depression [Unknown]
  - Rash [Unknown]
  - Raynaud^s phenomenon [Recovered/Resolved]
  - Supraventricular tachycardia [Recovered/Resolved]

NARRATIVE: CASE EVENT DATE: 20231101
